FAERS Safety Report 20558770 (Version 1)
Quarter: 2022Q1

REPORT INFORMATION
  Report Type: Spontaneous
  Country: US (occurrence: US)
  Receive Date: 20220307
  Receipt Date: 20220307
  Transmission Date: 20220423
  Serious: No
  Sender: FDA-Public Use
  Company Number: US-SANOFI-00996037

PATIENT
  Age: 78 Year
  Sex: Female

DRUGS (1)
  1. SOLIQUA 100/33 [Suspect]
     Active Substance: INSULIN GLARGINE\LIXISENATIDE

REACTIONS (5)
  - Cough [Unknown]
  - Cardiac disorder [Unknown]
  - Feeling jittery [Unknown]
  - Fatigue [Unknown]
  - Dizziness [Unknown]
